FAERS Safety Report 7827117-3 (Version None)
Quarter: 2011Q4

REPORT INFORMATION
  Report Type: 
  Country: None (occurrence: None)
  Receive Date: 20111020
  Receipt Date: 20111011
  Transmission Date: 20120403
  Serious: Yes (Other)
  Sender: FDA-Public Use
  Company Number: US-BAYER-2011-098316

PATIENT
  Sex: Female

DRUGS (3)
  1. ANXIOLYTICS [Concomitant]
     Indication: ANXIETY
  2. UNKNOWN DRUG [Concomitant]
     Indication: PRODUCT USED FOR UNKNOWN INDICATION
  3. MIRENA [Suspect]
     Dosage: 20 MCG/24HR, CONT
     Dates: start: 20111010

REACTIONS (2)
  - DEVICE EXPULSION [None]
  - CONVULSION [None]
